FAERS Safety Report 25187421 (Version 1)
Quarter: 2025Q2

REPORT INFORMATION
  Report Type: Spontaneous
  Country: NL (occurrence: NL)
  Receive Date: 20250411
  Receipt Date: 20250411
  Transmission Date: 20250717
  Serious: Yes (Death, Life-Threatening, Hospitalization, Other)
  Sender: ACS DOBFAR
  Company Number: NL-ACS-20250206

PATIENT
  Age: 77 Year
  Sex: Male

DRUGS (6)
  1. AMOXICILLIN [Suspect]
     Active Substance: AMOXICILLIN
     Indication: Brain abscess
     Dosage: AMOXICILLIN 2G SIX TIMES DAILY
     Route: 042
  2. CLARITHROMYCIN [Suspect]
     Active Substance: CLARITHROMYCIN
     Indication: Brain abscess
     Dosage: ORAL CLARITHROMYCIN 250MG TWICE DAILY
     Route: 048
  3. METRONIDAZOLE [Suspect]
     Active Substance: METRONIDAZOLE
     Indication: Brain abscess
     Dosage: METRONIDAZOLE 500MG INTRAVENOUSLY THREE TIMES DAILY
     Route: 042
  4. VANCOMYCIN [Suspect]
     Active Substance: VANCOMYCIN
     Indication: Brain abscess
     Route: 042
  5. CEFTRIAXONE [Suspect]
     Active Substance: CEFTRIAXONE
     Indication: Brain abscess
     Dosage: CEFTRIAXONE 2G TWICE DAILY
     Route: 042
  6. PENICILLIN [Suspect]
     Active Substance: PENICILLIN
     Indication: Brain abscess
     Dosage: IV PENICILLIN [SPECIFIC DRUG NOT STATED] 12 MILLION UNITS EVERY 24 HOURS WAS INITIATED (1210*6.[IU])
     Route: 042

REACTIONS (2)
  - Drug reaction with eosinophilia and systemic symptoms [Fatal]
  - Off label use [Unknown]
